FAERS Safety Report 9549488 (Version 1)
Quarter: 2013Q3

REPORT INFORMATION
  Report Type: Spontaneous
  Country: US (occurrence: US)
  Receive Date: 20130924
  Receipt Date: 20130924
  Transmission Date: 20140515
  Serious: Yes (Other)
  Sender: FDA-Public Use
  Company Number: US-SP-2013-09667

PATIENT
  Sex: Female

DRUGS (1)
  1. TUBERSOL 5 TU [Suspect]
     Indication: TUBERCULIN TEST
     Dosage: NOT REPORTED
     Route: 065
     Dates: start: 20130911, end: 20130911

REACTIONS (8)
  - Local swelling [Not Recovered/Not Resolved]
  - Injection site swelling [Not Recovered/Not Resolved]
  - Erythema [Not Recovered/Not Resolved]
  - Injection site papule [Not Recovered/Not Resolved]
  - Injection site pruritus [Not Recovered/Not Resolved]
  - Urticaria [Not Recovered/Not Resolved]
  - Rash [Not Recovered/Not Resolved]
  - Paraesthesia [Not Recovered/Not Resolved]
